FAERS Safety Report 9281155 (Version 1)
Quarter: 2013Q2

REPORT INFORMATION
  Report Type: Spontaneous
  Country: US (occurrence: None)
  Receive Date: 20130508
  Receipt Date: 20130508
  Transmission Date: 20140414
  Serious: No
  Sender: FDA-Public Use
  Company Number: None

PATIENT
  Age: 53 Year
  Sex: Male

DRUGS (10)
  1. DOXORUBICIN [Suspect]
     Indication: PLASMA CELL MYELOMA
     Route: 042
     Dates: start: 20110321, end: 20110324
  2. CISPLATIN [Suspect]
     Indication: PLASMA CELL MYELOMA
     Route: 042
     Dates: start: 20110321, end: 20110324
  3. ACYCLOVIR [Concomitant]
  4. FENTANYL [Concomitant]
  5. FILGRASTIM [Concomitant]
  6. INSULIN ASART [Concomitant]
  7. LORAZEPAM [Concomitant]
  8. MEROPENEM [Concomitant]
  9. TOBRAMYCIN [Concomitant]
  10. VANCOMYCIN [Concomitant]

REACTIONS (11)
  - Enterococcal bacteraemia [None]
  - Chest X-ray abnormal [None]
  - Liver injury [None]
  - Renal failure acute [None]
  - Gastrointestinal haemorrhage [None]
  - Abdominal pain upper [None]
  - Transaminases increased [None]
  - Dyspnoea [None]
  - Fatigue [None]
  - Chills [None]
  - Ejection fraction decreased [None]
